FAERS Safety Report 22051461 (Version 2)
Quarter: 2023Q2

REPORT INFORMATION
  Report Type: Spontaneous
  Country: US (occurrence: None)
  Receive Date: 20230301
  Receipt Date: 20230418
  Transmission Date: 20230721
  Serious: No
  Sender: FDA-Public Use
  Company Number: 2023A048220

PATIENT
  Sex: Female
  Weight: 113.4 kg

DRUGS (1)
  1. SAPHNELO [Suspect]
     Active Substance: ANIFROLUMAB-FNIA
     Indication: Systemic lupus erythematosus
     Route: 041
     Dates: start: 20220506

REACTIONS (10)
  - Upper respiratory tract infection [Unknown]
  - Chills [Unknown]
  - Hyperhidrosis [Unknown]
  - Pollakiuria [Unknown]
  - Dysuria [Unknown]
  - Abdominal pain upper [Unknown]
  - Agitation [Unknown]
  - Nightmare [Unknown]
  - Dry mouth [Unknown]
  - Tooth disorder [Unknown]
